FAERS Safety Report 5159310-5 (Version None)
Quarter: 2006Q4

REPORT INFORMATION
  Report Type: 
  Country: None (occurrence: None)
  Receive Date: 20061120
  Receipt Date: 20061103
  Transmission Date: 20070319
  Serious: Yes (Hospitalization)
  Sender: FDA-Public Use
  Company Number: 8020161

PATIENT
  Age: 7 Year
  Sex: Male

DRUGS (4)
  1. KEPPRA [Suspect]
     Indication: EPILEPSY
     Dosage: 0.5 DF /D PO
     Route: 048
     Dates: start: 20061024
  2. URBANYL [Concomitant]
  3. OSPOLOT [Concomitant]
  4. RITALIN [Concomitant]

REACTIONS (8)
  - AGGRESSION [None]
  - AGITATION [None]
  - CONDITION AGGRAVATED [None]
  - CONVULSION [None]
  - DRUG INEFFECTIVE [None]
  - FALL [None]
  - PSYCHOMOTOR HYPERACTIVITY [None]
  - STRABISMUS [None]
